FAERS Safety Report 6084532-9 (Version None)
Quarter: 2009Q1

REPORT INFORMATION
  Report Type: 
  Country: None (occurrence: None)
  Receive Date: 20090217
  Receipt Date: 20081210
  Transmission Date: 20090719
  Serious: Yes (Life-Threatening)
  Sender: FDA-Public Use
  Company Number: 1-17543347

PATIENT
  Age: 25 Year
  Sex: Female

DRUGS (3)
  1. FENTANYL-25 [Suspect]
     Indication: ANAESTHESIA
     Dosage: 0.15 MG
     Dates: start: 20081201, end: 20081201
  2. CURACIT [Suspect]
     Indication: ANAESTHESIA
     Dosage: 50 MG
     Dates: start: 20081201, end: 20081201
  3. PENTOTHAL [Suspect]
     Indication: ANAESTHESIA
     Dosage: 250 MG
     Dates: start: 20081201, end: 20081201

REACTIONS (1)
  - ANAPHYLACTIC SHOCK [None]
